FAERS Safety Report 24993162 (Version 1)
Quarter: 2025Q1

REPORT INFORMATION
  Report Type: Spontaneous
  Country: FR (occurrence: None)
  Receive Date: 20250221
  Receipt Date: 20250221
  Transmission Date: 20250409
  Serious: Yes (Life-Threatening)
  Sender: ORION
  Company Number: None

PATIENT
  Age: 86 Year
  Sex: Female

DRUGS (8)
  1. METHOTREXATE [Suspect]
     Active Substance: METHOTREXATE
     Indication: Rheumatoid arthritis
     Dates: start: 20210129, end: 20240401
  2. ACETAMINOPHEN [Concomitant]
     Active Substance: ACETAMINOPHEN
  3. HYDROCORTISONE [Concomitant]
     Active Substance: HYDROCORTISONE
     Dates: end: 20240425
  4. ATORVASTATIN [Concomitant]
     Active Substance: ATORVASTATIN
     Dates: end: 20240409
  5. ALPRAZOLAM [Concomitant]
     Active Substance: ALPRAZOLAM
  6. LERCANIDIPINE HYDROCHLORIDE [Concomitant]
     Active Substance: LERCANIDIPINE HYDROCHLORIDE
     Dates: end: 20240418
  7. FOLIC ACID [Concomitant]
     Active Substance: FOLIC ACID
     Dates: start: 20210201, end: 20240401
  8. INDAPAMIDE [Concomitant]
     Active Substance: INDAPAMIDE
     Dates: end: 20240418

REACTIONS (1)
  - Non-Hodgkin^s lymphoma [Not Recovered/Not Resolved]

NARRATIVE: CASE EVENT DATE: 20240401
